FAERS Safety Report 7744165-2 (Version None)
Quarter: 2011Q3

REPORT INFORMATION
  Report Type: 
  Country: None (occurrence: None)
  Receive Date: 20110912
  Receipt Date: 20110902
  Transmission Date: 20111222
  Serious: Yes (Other)
  Sender: FDA-Public Use
  Company Number: PR-PFIZER INC-2007092992

PATIENT

DRUGS (1)
  1. NORVASC [Suspect]

REACTIONS (2)
  - ANGIOEDEMA [None]
  - STEVENS-JOHNSON SYNDROME [None]
